FAERS Safety Report 7509897-X (Version None)
Quarter: 2011Q2

REPORT INFORMATION
  Report Type: 
  Country: None (occurrence: None)
  Receive Date: 20110527
  Receipt Date: 20110520
  Transmission Date: 20111010
  Serious: Yes (Hospitalization)
  Sender: FDA-Public Use
  Company Number: US-US-EMD SERONO, INC.-7060743

PATIENT
  Sex: Female
  Weight: 100 kg

DRUGS (4)
  1. BACLOFEN [Concomitant]
     Indication: MUSCLE SPASTICITY
  2. REBIF [Suspect]
     Indication: PRODUCT USED FOR UNKNOWN INDICATION
     Route: 058
     Dates: start: 20070926, end: 20090901
  3. NAPROXEN [Concomitant]
     Indication: PREMEDICATION
  4. MULTI-VITAMIN [Concomitant]
     Indication: SUPPLEMENTATION THERAPY

REACTIONS (3)
  - BREAST CANCER [None]
  - ANXIETY [None]
  - WHITE BLOOD CELL COUNT DECREASED [None]
